FAERS Safety Report 4412142-5 (Version None)
Quarter: 2004Q2

REPORT INFORMATION
  Report Type: 
  Country: None (occurrence: None)
  Receive Date: 20040630
  Receipt Date: 20040317
  Transmission Date: 20050107
  Serious: No
  Sender: FDA-Public Use
  Company Number: 04P-163-0254466-00

PATIENT
  Age: 66 Year
  Sex: Female
  Weight: 61.6892 kg

DRUGS (6)
  1. HUMIRA [Suspect]
     Indication: RHEUMATOID ARTHRITIS
     Dosage: 40 MG, 1 IN 2 WK; SUBCUTANEOUS
     Route: 058
     Dates: start: 20031201
  2. SECTRAL [Concomitant]
  3. CONJUGATED ESTROGEN [Concomitant]
  4. ALPRAZOLAM [Concomitant]
  5. PREDNISONE [Concomitant]
  6. METHOTREXATE [Concomitant]

REACTIONS (1)
  - WEIGHT INCREASED [None]
